FAERS Safety Report 6436641-X (Version None)
Quarter: 2009Q4

REPORT INFORMATION
  Report Type: 
  Country: None (occurrence: None)
  Receive Date: 20091111
  Receipt Date: 20091104
  Transmission Date: 20100525
  Serious: Yes (Other)
  Sender: FDA-Public Use
  Company Number: SE-WYE-G04227409

PATIENT
  Age: 76 Year
  Sex: Female

DRUGS (3)
  1. TIGECYCLINE [Suspect]
     Indication: ENDOCARDITIS
     Dosage: INITIALLY 100 MG AFTER THAT 50 MG EVERY 12 HRS
     Route: 042
     Dates: start: 20090804
  2. PROPOFOL [Suspect]
  3. VANCOMYCIN [Concomitant]
     Indication: ENDOCARDITIS

REACTIONS (1)
  - METABOLIC ACIDOSIS [None]
